FAERS Safety Report 6260927-5 (Version None)
Quarter: 2009Q3

REPORT INFORMATION
  Report Type: 
  Country: None (occurrence: None)
  Receive Date: 20090709
  Receipt Date: 20070803
  Transmission Date: 20100115
  Serious: Yes (Hospitalization, Other)
  Sender: FDA-Public Use
  Company Number: US-ASTRAZENECA-2007UW02039

PATIENT
  Age: 191 Month
  Sex: Female
  Weight: 90.7 kg

DRUGS (27)
  1. SEROQUEL [Suspect]
     Indication: MOOD SWINGS
     Dosage: 50-300 MG
     Route: 048
     Dates: start: 20010706, end: 20030201
  2. SEROQUEL [Suspect]
     Indication: IRRITABILITY
     Dosage: 50-300 MG
     Route: 048
     Dates: start: 20010706, end: 20030201
  3. SEROQUEL [Suspect]
     Indication: ANGER
     Dosage: 50-300 MG
     Route: 048
     Dates: start: 20010706, end: 20030201
  4. SEROQUEL [Suspect]
     Dosage: 25-300 MG
     Route: 048
  5. SEROQUEL [Suspect]
     Dosage: 25-300 MG
     Route: 048
  6. SEROQUEL [Suspect]
     Dosage: 25-300 MG
     Route: 048
  7. RISPERDAL [Concomitant]
     Dosage: AROUND 20 MG
     Dates: start: 20040401, end: 20040901
  8. EFFEXOR [Concomitant]
     Dosage: 75-250 MG
     Route: 048
  9. WELLBUTRIN [Concomitant]
     Route: 048
  10. HUMALOG [Concomitant]
     Route: 048
  11. TERAZOL 1 [Concomitant]
     Route: 067
  12. ZYRTEC [Concomitant]
     Route: 065
  13. METFORMIN HCL [Concomitant]
     Route: 048
  14. IBUPROFEN TABLETS [Concomitant]
     Route: 048
  15. BENADRYL [Concomitant]
     Route: 048
  16. LORATADINE [Concomitant]
     Route: 065
  17. PRILOSEC [Concomitant]
     Route: 048
  18. FLUCONAZOLE [Concomitant]
     Route: 048
  19. VALTREX [Concomitant]
     Route: 048
  20. CIPROFLOXACIN [Concomitant]
     Route: 048
  21. METRONIDAZOLE [Concomitant]
     Route: 048
  22. CLOTRIMAZOLE [Concomitant]
     Route: 061
  23. DEPO-PROVERA [Concomitant]
     Route: 030
  24. HUMULIN R [Concomitant]
     Route: 065
  25. TOPAMAX [Concomitant]
     Dosage: 25-75 MG
     Route: 048
  26. NPH INSULIN [Concomitant]
     Route: 065
  27. METADATE CD [Concomitant]
     Route: 048

REACTIONS (6)
  - ASTHMA [None]
  - DIABETES MELLITUS [None]
  - HOMICIDAL IDEATION [None]
  - OBESITY [None]
  - SUICIDAL IDEATION [None]
  - WEIGHT INCREASED [None]
